FAERS Safety Report 5193703-5 (Version None)
Quarter: 2006Q4

REPORT INFORMATION
  Report Type: 
  Country: None (occurrence: None)
  Receive Date: 20061228
  Receipt Date: 20061208
  Transmission Date: 20070319
  Serious: Yes (Other)
  Sender: FDA-Public Use
  Company Number: US-JNJFOC-20061201400

PATIENT
  Sex: Male
  Weight: 113.85 kg

DRUGS (4)
  1. RISPERDAL CONSTA [Suspect]
     Indication: AGITATION
     Route: 042
  2. HALDOL [Concomitant]
     Route: 048
  3. HALDOL [Concomitant]
  4. CLONAZEPAM [Concomitant]

REACTIONS (2)
  - INCORRECT ROUTE OF DRUG ADMINISTRATION [None]
  - OFF LABEL USE [None]
